FAERS Safety Report 5587080-5 (Version None)
Quarter: 2008Q1

REPORT INFORMATION
  Report Type: 
  Country: None (occurrence: None)
  Receive Date: 20080110
  Receipt Date: 20080103
  Transmission Date: 20080703
  Serious: Yes (Other)
  Sender: FDA-Public Use
  Company Number: B0376808A

PATIENT
  Sex: Male

DRUGS (3)
  1. PAROXETINE [Suspect]
     Indication: DEPRESSION
     Dates: start: 20010730
  2. PROZAC [Concomitant]
     Dates: start: 20050218
  3. VALPROATE SODIUM [Concomitant]
     Dates: start: 20031103

REACTIONS (22)
  - AGGRESSION [None]
  - AGITATION [None]
  - ANXIETY [None]
  - CONDITION AGGRAVATED [None]
  - CONFUSIONAL STATE [None]
  - DEPRESSION [None]
  - DIZZINESS [None]
  - DRUG WITHDRAWAL SYNDROME [None]
  - FATIGUE [None]
  - INFLUENZA LIKE ILLNESS [None]
  - INSOMNIA [None]
  - INTENTIONAL SELF-INJURY [None]
  - LETHARGY [None]
  - MOOD SWINGS [None]
  - MUSCLE TWITCHING [None]
  - NERVOUSNESS [None]
  - PARANOIA [None]
  - SELF-INJURIOUS IDEATION [None]
  - SENSORY DISTURBANCE [None]
  - SUICIDAL IDEATION [None]
  - TREMOR [None]
  - WEIGHT INCREASED [None]
